FAERS Safety Report 10166467 (Version 1)
Quarter: 2014Q2

REPORT INFORMATION
  Report Type: Spontaneous
  Country: US (occurrence: None)
  Receive Date: 20140509
  Receipt Date: 20140509
  Transmission Date: 20141212
  Serious: Yes (Disabling)
  Sender: FDA-Public Use
  Company Number: None

PATIENT
  Age: 76 Year
  Sex: Female
  Weight: 93.44 kg

DRUGS (1)
  1. SCOPOLAMINE [Suspect]
     Indication: NAUSEA
     Dates: start: 20140304

REACTIONS (1)
  - Blindness unilateral [None]
